FAERS Safety Report 8615781-0 (Version None)
Quarter: 2012Q3

REPORT INFORMATION
  Report Type: 
  Country: None (occurrence: None)
  Receive Date: 20120823
  Receipt Date: 20120817
  Transmission Date: 20120928
  Serious: Yes (Other)
  Sender: FDA-Public Use
  Company Number: US-PFIZER INC-2011306839

PATIENT
  Age: 67 Year
  Sex: Female
  Weight: 78.912 kg

DRUGS (3)
  1. LEVOXYL [Suspect]
     Dosage: 100 UG, DAILY
  2. LEVOXYL [Suspect]
     Indication: HYPOTHYROIDISM
     Dosage: 50 UG, UNK
  3. SYNTHROID [Suspect]
     Indication: HYPOTHYROIDISM
     Dosage: UNK

REACTIONS (15)
  - CONFUSIONAL STATE [None]
  - MEMORY IMPAIRMENT [None]
  - ONYCHOCLASIS [None]
  - DISTURBANCE IN ATTENTION [None]
  - RESPIRATORY TRACT CONGESTION [None]
  - THYROXINE INCREASED [None]
  - TRI-IODOTHYRONINE DECREASED [None]
  - DRY SKIN [None]
  - WEIGHT LOSS POOR [None]
  - WEIGHT INCREASED [None]
  - MOOD ALTERED [None]
  - INSOMNIA [None]
  - ALOPECIA [None]
  - CONSTIPATION [None]
  - NASOPHARYNGITIS [None]
